FAERS Safety Report 19057298 (Version 1)
Quarter: 2021Q1

REPORT INFORMATION
  Report Type: Spontaneous
  Country: PT (occurrence: PT)
  Receive Date: 20210324
  Receipt Date: 20210324
  Transmission Date: 20210420
  Serious: Yes (Life-Threatening, Hospitalization, Other)
  Sender: FDA-Public Use
  Company Number: PT-GILEAD-2020-0487026

PATIENT
  Age: 33 Year
  Sex: Male
  Weight: 68 kg

DRUGS (6)
  1. REMIFENTANIL [Concomitant]
     Active Substance: REMIFENTANIL
     Dosage: 2 MG, QD
     Route: 042
  2. VEKLURY [Suspect]
     Active Substance: REMDESIVIR
     Indication: COVID-19
     Dosage: 200 MG, ONCE
     Route: 042
     Dates: start: 20200629, end: 20200629
  3. SUCRALFATE. [Concomitant]
     Active Substance: SUCRALFATE
     Dosage: 4000 MG, QD
  4. ENOXAPARIN SODIUM. [Concomitant]
     Active Substance: ENOXAPARIN SODIUM
     Dosage: 40 MG, QD
     Route: 042
  5. VEKLURY [Suspect]
     Active Substance: REMDESIVIR
     Dosage: 100 MG, QD
     Route: 042
     Dates: start: 20200630, end: 20200701
  6. CEFTRIAXONE. [Concomitant]
     Active Substance: CEFTRIAXONE
     Dosage: 2000 MG, QD

REACTIONS (3)
  - Seizure [Recovered/Resolved]
  - COVID-19 treatment [Unknown]
  - Transaminases increased [Recovering/Resolving]

NARRATIVE: CASE EVENT DATE: 20200629
